FAERS Safety Report 10399496 (Version 2)
Quarter: 2014Q4

REPORT INFORMATION
  Report Type: Spontaneous
  Country: SE (occurrence: SE)
  Receive Date: 20140821
  Receipt Date: 20141226
  Transmission Date: 20150528
  Serious: Yes (Life-Threatening, Hospitalization)
  Sender: FDA-Public Use
  Company Number: SE-ASTRAZENECA-2014SE61608

PATIENT
  Age: 72 Year
  Sex: Male

DRUGS (6)
  1. GLYCERYL TRINITRATE [Suspect]
     Active Substance: NITROGLYCERIN
     Route: 065
     Dates: start: 20130325, end: 20130325
  2. FELODIPINE. [Suspect]
     Active Substance: FELODIPINE
     Route: 048
     Dates: start: 20130325, end: 20130325
  3. PANODIL [Suspect]
     Active Substance: ACETAMINOPHEN
     Dosage: WHOLE JAR
     Route: 048
     Dates: start: 20130325, end: 20130325
  4. SOBRIL [Suspect]
     Active Substance: OXAZEPAM
     Route: 048
     Dates: start: 20130325, end: 20130325
  5. IPREN [Suspect]
     Active Substance: IBUPROFEN
     Dosage: ONE BLISTER PACKAGE
     Route: 048
     Dates: start: 20130325, end: 20130325
  6. ATENOLOL. [Suspect]
     Active Substance: ATENOLOL
     Route: 048
     Dates: start: 20130325, end: 20130325

REACTIONS (6)
  - Bradycardia [Unknown]
  - Cardiac arrest [Unknown]
  - Vomiting [Unknown]
  - Toxicity to various agents [Unknown]
  - Fatigue [Unknown]
  - Suicide attempt [Unknown]

NARRATIVE: CASE EVENT DATE: 20130325
